FAERS Safety Report 10157952 (Version 1)
Quarter: 2014Q2

REPORT INFORMATION
  Report Type: Report from Study
  Country: US (occurrence: US)
  Receive Date: 20140507
  Receipt Date: 20140507
  Transmission Date: 20141212
  Serious: Yes (Hospitalization)
  Sender: FDA-Public Use
  Company Number: US-SA-2014SA056739

PATIENT
  Age: 74 Year
  Sex: Female

DRUGS (6)
  1. LANTUS SOLOSTAR [Suspect]
     Indication: TYPE 2 DIABETES MELLITUS
     Dosage: DOSE:28 UNIT(S)
     Route: 065
     Dates: start: 20131001, end: 20140327
  2. LANTUS SOLOSTAR [Suspect]
     Indication: TYPE 2 DIABETES MELLITUS
     Route: 065
     Dates: start: 20140404
  3. SOLOSTAR [Concomitant]
     Dates: start: 20131001, end: 20140327
  4. SOLOSTAR [Concomitant]
     Dates: start: 20140404
  5. LEVEMIR [Concomitant]
     Dosage: DOSE:25 UNIT(S)
     Dates: start: 2010
  6. LEVEMIR [Concomitant]
     Dates: start: 20140328

REACTIONS (3)
  - Myocardial infarction [Not Recovered/Not Resolved]
  - Blood glucose increased [Not Recovered/Not Resolved]
  - Drug dose omission [Unknown]
